FAERS Safety Report 19477389 (Version 2)
Quarter: 2021Q3

REPORT INFORMATION
  Report Type: Spontaneous
  Country: HR (occurrence: HR)
  Receive Date: 20210630
  Receipt Date: 20210910
  Transmission Date: 20211014
  Serious: Yes (Other)
  Sender: FDA-Public Use
  Company Number: HR-BEH-2021133175

PATIENT
  Sex: Male

DRUGS (2)
  1. HUMAN IMMUNOGLOBULIN (NC) (IMMUNOGLOBULIN HUMAN NORMAL) [Suspect]
     Active Substance: HUMAN IMMUNOGLOBULIN G
     Indication: COMBINED IMMUNODEFICIENCY
     Dosage: DAY 18
     Route: 042
  2. HUMAN IMMUNOGLOBULIN (NC) (IMMUNOGLOBULIN HUMAN NORMAL) [Suspect]
     Active Substance: HUMAN IMMUNOGLOBULIN G
     Dosage: DAY 20
     Route: 042

REACTIONS (6)
  - Blood bilirubin increased [Recovered/Resolved]
  - Blood lactate dehydrogenase increased [Recovered/Resolved]
  - Haemolytic anaemia [Recovered/Resolved]
  - Coombs direct test positive [Recovered/Resolved]
  - Haemoglobin decreased [Recovered/Resolved]
  - Bilirubin conjugated increased [Recovered/Resolved]
